FAERS Safety Report 11680185 (Version 2)
Quarter: 2015Q4

REPORT INFORMATION
  Report Type: Spontaneous
  Country: US (occurrence: US)
  Receive Date: 20151027
  Receipt Date: 20151104
  Transmission Date: 20160304
  Serious: No
  Sender: FDA-Public Use
  Company Number: US-ELI_LILLY_AND_COMPANY-US201010005761

PATIENT
  Age: 68 Year
  Sex: Female

DRUGS (2)
  1. FORTEO [Suspect]
     Active Substance: TERIPARATIDE
     Dosage: 20 UG, DAILY (1/D)
     Route: 058
     Dates: start: 20110214, end: 20110224
  2. FORTEO [Suspect]
     Active Substance: TERIPARATIDE
     Indication: OSTEOPOROSIS
     Dosage: 20 UG, DAILY (1/D)
     Route: 058
     Dates: end: 201011

REACTIONS (13)
  - Hypertrichosis [Unknown]
  - Musculoskeletal discomfort [Unknown]
  - Headache [Unknown]
  - Decreased appetite [Unknown]
  - Alopecia [Unknown]
  - Palpitations [Unknown]
  - Gait disturbance [Unknown]
  - Neck pain [Unknown]
  - Migraine [Unknown]
  - Bone pain [Unknown]
  - Intentional product misuse [Unknown]
  - Hair growth abnormal [Unknown]
  - Pain in extremity [Unknown]

NARRATIVE: CASE EVENT DATE: 201010
